FAERS Safety Report 10008493 (Version 1)
Quarter: 2014Q1

REPORT INFORMATION
  Report Type: Spontaneous
  Country: US (occurrence: None)
  Receive Date: 20140228
  Receipt Date: 20140228
  Transmission Date: 20141002
  Serious: Yes (Other)
  Sender: FDA-Public Use
  Company Number: 225173

PATIENT
  Age: 48 Year
  Sex: Female

DRUGS (1)
  1. PICATO GEL [Suspect]
     Indication: ACTINIC KERATOSIS
     Dosage: ONCE DAILY FOR 3 DAYS, TOPICAL
     Route: 061

REACTIONS (5)
  - Application site pain [None]
  - Application site erythema [None]
  - Application site pain [None]
  - Application site swelling [None]
  - Incorrect drug administration duration [None]
